FAERS Safety Report 4510101-5 (Version None)
Quarter: 2004Q4

REPORT INFORMATION
  Report Type: 
  Country: None (occurrence: None)
  Receive Date: 20041124
  Receipt Date: 20041112
  Transmission Date: 20050328
  Serious: Yes (Other)
  Sender: FDA-Public Use
  Company Number: US-JNJFOC-20041103748

PATIENT
  Sex: Female
  Weight: 78.47 kg

DRUGS (12)
  1. INFLIXIMAB [Suspect]
     Indication: RHEUMATOID ARTHRITIS
     Route: 042
  2. METHOTREXATE [Concomitant]
  3. SYNTHROID [Concomitant]
  4. FOLIC ACID [Concomitant]
  5. FUROSEMIDE [Concomitant]
  6. ATENOLOL [Concomitant]
  7. SPIRONOLACTONE [Concomitant]
  8. HYDROXYCHLOROQUINE [Concomitant]
  9. AMITRIPTYLINE [Concomitant]
  10. ALLEGRA [Concomitant]
  11. PROTOPIC [Concomitant]
  12. MIACALCIN [Concomitant]

REACTIONS (1)
  - SQUAMOUS CELL CARCINOMA [None]
